FAERS Safety Report 15878804 (Version 1)
Quarter: 2019Q1

REPORT INFORMATION
  Report Type: Spontaneous
  Country: US (occurrence: US)
  Receive Date: 20190128
  Receipt Date: 20190128
  Transmission Date: 20190417
  Serious: No
  Sender: FDA-Public Use
  Company Number: US-ELI_LILLY_AND_COMPANY-US201901012243

PATIENT
  Sex: Male

DRUGS (8)
  1. HUMALOG [Suspect]
     Active Substance: INSULIN LISPRO
     Dosage: 6 U, EACH MORNING
     Route: 058
  2. HUMALOG [Suspect]
     Active Substance: INSULIN LISPRO
     Dosage: 3 U, LUNCH
     Route: 058
  3. HUMALOG [Suspect]
     Active Substance: INSULIN LISPRO
     Indication: DIABETES MELLITUS
     Dosage: 6 U, EACH MORNING
     Route: 058
  4. METFORMIN [Concomitant]
     Active Substance: METFORMIN HYDROCHLORIDE
     Indication: PRODUCT USED FOR UNKNOWN INDICATION
  5. HUMALOG [Suspect]
     Active Substance: INSULIN LISPRO
     Dosage: 3 U, LUNCH
     Route: 058
  6. HUMALOG [Suspect]
     Active Substance: INSULIN LISPRO
     Dosage: 6 U, DINNER
     Route: 058
  7. HUMALOG [Suspect]
     Active Substance: INSULIN LISPRO
     Dosage: 6 U, DINNER
     Route: 058
  8. LANTUS [Concomitant]
     Active Substance: INSULIN GLARGINE
     Indication: PRODUCT USED FOR UNKNOWN INDICATION
     Dosage: 12 U, UNKNOWN

REACTIONS (2)
  - Visual impairment [Unknown]
  - Blood glucose increased [Unknown]
